FAERS Safety Report 7477131-5 (Version None)
Quarter: 2011Q2

REPORT INFORMATION
  Report Type: 
  Country: None (occurrence: None)
  Receive Date: 20110512
  Receipt Date: 20110127
  Transmission Date: 20111010
  Serious: No
  Sender: FDA-Public Use
  Company Number: US-NOVEN-11US001699

PATIENT
  Sex: Male
  Weight: 190 kg

DRUGS (3)
  1. DAYTRANA [Suspect]
     Dosage: 30 MG, QD
     Route: 062
     Dates: start: 20110116
  2. DAYTRANA [Suspect]
     Dosage: 30 MG, 1X/DAY: QD
     Route: 062
     Dates: start: 20070701, end: 20090101
  3. DAYTRANA [Suspect]
     Indication: ATTENTION DEFICIT/HYPERACTIVITY DISORDER
     Dosage: 30 MG, 1X/DAY: QD
     Route: 062
     Dates: start: 20101001

REACTIONS (6)
  - MEMORY IMPAIRMENT [None]
  - PRODUCT QUALITY ISSUE [None]
  - CONDITION AGGRAVATED [None]
  - ATTENTION DEFICIT/HYPERACTIVITY DISORDER [None]
  - THERAPEUTIC RESPONSE UNEXPECTED [None]
  - OFF LABEL USE [None]
